FAERS Safety Report 17031531 (Version 1)
Quarter: 2019Q4

REPORT INFORMATION
  Report Type: Spontaneous
  Country: IT (occurrence: IT)
  Receive Date: 20191114
  Receipt Date: 20191114
  Transmission Date: 20200122
  Serious: Yes (Other)
  Sender: FDA-Public Use
  Company Number: IT-FRESENIUS KABI-FK201912592

PATIENT
  Age: 81 Year
  Sex: Female

DRUGS (1)
  1. DIPYRIDAMOLE (MANUFACTURER UNKNOWN) [Suspect]
     Active Substance: DIPYRIDAMOLE
     Indication: CARDIAC STRESS TEST
     Dosage: 0,84 MG/KG
     Route: 042

REACTIONS (1)
  - Stress cardiomyopathy [Recovered/Resolved]
